FAERS Safety Report 10637758 (Version 1)
Quarter: 2014Q4

REPORT INFORMATION
  Report Type: Spontaneous
  Country: US (occurrence: None)
  Receive Date: 20141205
  Receipt Date: 20141205
  Transmission Date: 20150529
  Serious: No
  Sender: FDA-Public Use
  Company Number: None

PATIENT
  Age: 77 Year
  Sex: Male
  Weight: 29.48 kg

DRUGS (1)
  1. DABIGATRAN [Suspect]
     Active Substance: DABIGATRAN

REACTIONS (7)
  - Swelling [None]
  - Pain [None]
  - Gout [None]
  - Inflammation [None]
  - Musculoskeletal disorder [None]
  - Suicidal ideation [None]
  - Iatrogenic injury [None]
